FAERS Safety Report 7518319-4 (Version None)
Quarter: 2011Q2

REPORT INFORMATION
  Report Type: 
  Country: None (occurrence: None)
  Receive Date: 20110601
  Receipt Date: 20110601
  Transmission Date: 20111010
  Serious: Yes (Death)
  Sender: FDA-Public Use
  Company Number: None

PATIENT
  Sex: Female

DRUGS (1)
  1. PULMOZYME [Suspect]
     Dosage: 1 AMP DAILY NEBULIZER
     Dates: start: 20100115, end: 20110228

REACTIONS (1)
  - DEATH [None]
